FAERS Safety Report 22078657 (Version 2)
Quarter: 2023Q1

REPORT INFORMATION
  Report Type: Report from Study
  Country: US (occurrence: US)
  Receive Date: 20230309
  Receipt Date: 20230317
  Transmission Date: 20230418
  Serious: Yes (Death, Hospitalization)
  Sender: FDA-Public Use
  Company Number: US-MYLANLABS-2023M1024350

PATIENT
  Age: 53 Year
  Sex: Male

DRUGS (9)
  1. AMLODIPINE [Suspect]
     Active Substance: AMLODIPINE BESYLATE
     Dosage: UNK
     Route: 065
  2. NALOXONE HCL [Suspect]
     Active Substance: NALOXONE HYDROCHLORIDE
     Indication: Toxicity to various agents
     Dosage: UNK
     Route: 065
  3. EPINEPHRINE [Suspect]
     Active Substance: EPINEPHRINE
     Indication: Toxicity to various agents
     Dosage: UNK
     Route: 065
  4. NOREPINEPHRINE BITARTRATE [Suspect]
     Active Substance: NOREPINEPHRINE BITARTRATE
     Indication: Toxicity to various agents
     Dosage: UNK
     Route: 065
  5. FLUOXETINE [Suspect]
     Active Substance: FLUOXETINE HYDROCHLORIDE
     Dosage: UNK
     Route: 065
  6. INSULIN NOS [Suspect]
     Active Substance: INSULIN NOS
     Indication: Toxicity to various agents
     Dosage: UNK, HIGH DOSE INSULIN EUGLYCEMIC THERAPY
     Route: 065
  7. CALCIUM [Suspect]
     Active Substance: CALCIUM
     Indication: Toxicity to various agents
     Dosage: UNK
     Route: 065
  8. GLUCAGON [Suspect]
     Active Substance: GLUCAGON
     Indication: Toxicity to various agents
     Dosage: UNK
     Route: 065
  9. NALMEFENE [Suspect]
     Active Substance: NALMEFENE
     Indication: Toxicity to various agents
     Dosage: UNK
     Route: 065

REACTIONS (5)
  - Toxicity to various agents [Fatal]
  - Hypotension [Fatal]
  - Bradycardia [Fatal]
  - Drug ineffective [Fatal]
  - Off label use [Unknown]
